FAERS Safety Report 6857625-3 (Version None)
Quarter: 2010Q3

REPORT INFORMATION
  Report Type: 
  Country: None (occurrence: None)
  Receive Date: 20100719
  Receipt Date: 20080303
  Transmission Date: 20110219
  Serious: No
  Sender: FDA-Public Use
  Company Number: US-PFIZER INC-2008008695

PATIENT
  Sex: Female
  Weight: 52.2 kg

DRUGS (4)
  1. CHANTIX [Suspect]
     Indication: SMOKING CESSATION THERAPY
     Dates: start: 20080101
  2. TOPAMAX [Concomitant]
  3. EUGYNON [Concomitant]
     Indication: CONTRACEPTION
  4. IMITREX [Concomitant]
     Indication: MIGRAINE

REACTIONS (2)
  - NAUSEA [None]
  - VOMITING [None]
